FAERS Safety Report 22944997 (Version 3)
Quarter: 2024Q1

REPORT INFORMATION
  Report Type: Spontaneous
  Country: US (occurrence: US)
  Receive Date: 20230914
  Receipt Date: 20240307
  Transmission Date: 20240410
  Serious: No
  Sender: FDA-Public Use
  Company Number: US-PFIZER INC-PV202300153511

PATIENT
  Age: 67 Year
  Sex: Female
  Weight: 76.644 kg

DRUGS (4)
  1. IBRANCE [Suspect]
     Active Substance: PALBOCICLIB
     Indication: Breast cancer metastatic
     Dosage: 75 MG, CYCLIC (ONCE A DAY FOR 21 DAYS)
  2. IBRANCE [Suspect]
     Active Substance: PALBOCICLIB
     Dosage: TAKE ONE TABLET DAILY, 21 DAYS ON, 10 DAYS OFF
  3. HERCEPTIN HYLECTA [Concomitant]
     Active Substance: HYALURONIDASE-OYSK\TRASTUZUMAB
     Dosage: UNK
     Dates: start: 2012
  4. FULVESTRANT [Concomitant]
     Active Substance: FULVESTRANT
     Dosage: UNK
     Dates: start: 2017

REACTIONS (3)
  - Hypoacusis [Unknown]
  - Epistaxis [Not Recovered/Not Resolved]
  - Sensitivity to weather change [Not Recovered/Not Resolved]

NARRATIVE: CASE EVENT DATE: 20180101
